FAERS Safety Report 4529337-2 (Version None)
Quarter: 2004Q4

REPORT INFORMATION
  Report Type: 
  Country: None (occurrence: None)
  Receive Date: 20041215
  Receipt Date: 20041215
  Transmission Date: 20050328
  Serious: Yes (Other)
  Sender: FDA-Public Use
  Company Number: None

PATIENT
  Sex: Female
  Weight: 57.1532 kg

DRUGS (6)
  1. CARBIDOPA /LEVODOPA (GENERIC) [Suspect]
     Indication: RESTLESS LEGS SYNDROME
     Dosage: 25/250 8X DAILY
     Dates: start: 20020101, end: 20040101
  2. SYNTHROID [Concomitant]
  3. FUROSEMIDE [Concomitant]
  4. SPIRONOLACTONE [Concomitant]
  5. ZAROXOLYN [Concomitant]
  6. KCL TAB [Concomitant]

REACTIONS (2)
  - DRUG INEFFECTIVE [None]
  - PHARMACEUTICAL PRODUCT COMPLAINT [None]
